APPROVED DRUG PRODUCT: FULVESTRANT
Active Ingredient: FULVESTRANT
Strength: 250MG/5ML (50MG/ML)
Dosage Form/Route: SOLUTION;INTRAMUSCULAR
Application: A209246 | Product #001 | TE Code: AO
Applicant: DR REDDYS LABORATORIES LTD
Approved: Aug 7, 2020 | RLD: No | RS: No | Type: RX